FAERS Safety Report 4605034-X (Version None)
Quarter: 2005Q1

REPORT INFORMATION
  Report Type: 
  Country: None (occurrence: None)
  Receive Date: 20050311
  Receipt Date: 20050307
  Transmission Date: 20050727
  Serious: Yes (Other)
  Sender: FDA-Public Use
  Company Number: 200512114GDDC

PATIENT
  Sex: Male

DRUGS (3)
  1. LANTUS [Suspect]
     Indication: DIABETES MELLITUS
     Route: 058
  2. NOVORAPID [Concomitant]
     Dosage: DOSE: UNK
  3. ANTIEPILEPTICS [Concomitant]
     Dosage: DOSE: UNK

REACTIONS (2)
  - CONDITION AGGRAVATED [None]
  - EPILEPSY [None]
